FAERS Safety Report 24276839 (Version 1)
Quarter: 2024Q3

REPORT INFORMATION
  Report Type: Spontaneous
  Country: ES (occurrence: ES)
  Receive Date: 20240903
  Receipt Date: 20240903
  Transmission Date: 20241016
  Serious: Yes (Hospitalization, Other)
  Sender: AUROBINDO
  Company Number: ES-AEMPS-1562658

PATIENT
  Age: 72 Year
  Sex: Male

DRUGS (3)
  1. CARBOPLATIN [Suspect]
     Active Substance: CARBOPLATIN
     Indication: Lung neoplasm malignant
     Dosage: UNK (1 CYCLE EVERY 21 DAYS)
     Route: 042
     Dates: start: 20240516
  2. PACLITAXEL [Suspect]
     Active Substance: PACLITAXEL
     Indication: Lung neoplasm malignant
     Dosage: UNK (1 CYCLE EVERY 21 DAYS)
     Route: 042
     Dates: start: 20240516
  3. LIBTAYO [Suspect]
     Active Substance: CEMIPLIMAB-RWLC
     Indication: Lung neoplasm malignant
     Dosage: UNK (1 CYCLE EVERY 21 DAYS)
     Route: 042
     Dates: start: 20240516

REACTIONS (2)
  - Pancytopenia [Recovered/Resolved]
  - Diarrhoea [Recovering/Resolving]

NARRATIVE: CASE EVENT DATE: 20240701
